FAERS Safety Report 6406975-3 (Version None)
Quarter: 2009Q4

REPORT INFORMATION
  Report Type: 
  Country: None (occurrence: None)
  Receive Date: 20091020
  Receipt Date: 20091008
  Transmission Date: 20100525
  Serious: Yes (Death, Life-Threatening)
  Sender: FDA-Public Use
  Company Number: DE-PFIZER INC-2009213056

PATIENT
  Age: 60 Year

DRUGS (6)
  1. VORICONAZOLE [Suspect]
     Indication: ASPERGILLOSIS
     Dosage: 6 MG/KG, 2X/DAY
     Route: 042
     Dates: start: 20090422, end: 20090422
  2. VORICONAZOLE [Suspect]
     Dosage: 4 MG/KG, 2X/DAY
     Route: 042
     Dates: start: 20080423, end: 20090428
  3. VORICONAZOLE [Suspect]
     Dosage: 300 MG, 2X/DAY
     Route: 048
     Dates: start: 20090429, end: 20090506
  4. BLINDED *NO SUBJECT DRUG [Suspect]
     Indication: ASPERGILLOSIS
     Dosage: BLINDED THERAPY
     Route: 042
     Dates: start: 20090422, end: 20090513
  5. BLINDED *PLACEBO [Suspect]
     Indication: ASPERGILLOSIS
     Dosage: BLINDED THERAPY
     Route: 042
     Dates: start: 20090422, end: 20090513
  6. BLINDED ANIDULAFUNGIN [Suspect]
     Indication: ASPERGILLOSIS
     Dosage: BLINDED THERAPY
     Route: 042
     Dates: start: 20090422, end: 20090513

REACTIONS (3)
  - HEPATIC ENCEPHALOPATHY [None]
  - HEPATOTOXICITY [None]
  - SEPSIS [None]
